FAERS Safety Report 4970224-3 (Version None)
Quarter: 2006Q2

REPORT INFORMATION
  Report Type: 
  Country: None (occurrence: None)
  Receive Date: 20060406
  Receipt Date: 20060321
  Transmission Date: 20061013
  Serious: Yes (Hospitalization)
  Sender: FDA-Public Use
  Company Number: US_0510122889

PATIENT
  Age: 58 Year
  Sex: Male
  Weight: 131.5 kg

DRUGS (2)
  1. ZYPREXA [Suspect]
     Dosage: SEE IMAGE
     Route: 048
     Dates: start: 19970601
  2. ZYPREXA [Suspect]
     Dosage: SEE IMAGE
     Route: 048
     Dates: start: 19980101

REACTIONS (5)
  - CARDIAC DISORDER [None]
  - CORONARY ARTERY SURGERY [None]
  - DIABETES MELLITUS [None]
  - HYPERTENSION [None]
  - MENTAL IMPAIRMENT [None]
